FAERS Safety Report 4893339-7 (Version None)
Quarter: 2006Q1

REPORT INFORMATION
  Report Type: 
  Country: None (occurrence: None)
  Receive Date: 20060127
  Receipt Date: 20051114
  Transmission Date: 20060701
  Serious: Yes (Disabling, Other)
  Sender: FDA-Public Use
  Company Number: PL-ABBOTT-05P-129-0317219-00

PATIENT
  Age: 39 Year
  Sex: Male

DRUGS (4)
  1. DEPAKENE [Suspect]
     Indication: BIPOLAR DISORDER
     Dates: start: 20020101, end: 20051001
  2. DEPAKENE [Suspect]
  3. MIANSERIN HYDROCHLORIDE [Concomitant]
     Indication: ANTIDEPRESSANT THERAPY
     Route: 048
     Dates: start: 20020101, end: 20050101
  4. VENLAFAXINE HCL [Concomitant]
     Indication: ANTIDEPRESSANT THERAPY
     Route: 048
     Dates: start: 20020101, end: 20050101

REACTIONS (6)
  - ARTHRALGIA [None]
  - FALL [None]
  - FEMUR FRACTURE [None]
  - OSTEOCHONDROSIS [None]
  - OSTEONECROSIS [None]
  - TRAUMATIC FRACTURE [None]
